FAERS Safety Report 8950912 (Version 2)
Quarter: 2012Q4

REPORT INFORMATION
  Report Type: 
  Country: GB (occurrence: GB)
  Receive Date: 20121207
  Receipt Date: 20121221
  Transmission Date: 20130627
  Serious: No
  Sender: FDA-Public Use
  Company Number: GB-ABBOTT-12P-167-0999493-00

PATIENT
  Age: 72 Year
  Sex: Male

DRUGS (1)
  1. KLARICID [Suspect]
     Indication: PNEUMONIA
     Route: 042

REACTIONS (2)
  - Medication error [Unknown]
  - Wrong technique in drug usage process [Unknown]
